FAERS Safety Report 21810570 (Version 1)
Quarter: 2023Q1

REPORT INFORMATION
  Report Type: Report from Study
  Country: US (occurrence: US)
  Receive Date: 20230103
  Receipt Date: 20230103
  Transmission Date: 20230417
  Serious: No
  Sender: FDA-Public Use
  Company Number: US-ABBVIE-4227431

PATIENT
  Sex: Female

DRUGS (1)
  1. HUMIRA [Suspect]
     Active Substance: ADALIMUMAB
     Indication: Psoriasis
     Dosage: CITRATE FREE
     Route: 058
     Dates: start: 20221129

REACTIONS (6)
  - Arthralgia [Unknown]
  - Nasopharyngitis [Unknown]
  - Headache [Unknown]
  - Chest discomfort [Unknown]
  - Migraine [Unknown]
  - Nausea [Unknown]
